FAERS Safety Report 17928661 (Version 1)
Quarter: 2020Q2

REPORT INFORMATION
  Report Type: Spontaneous
  Country: US (occurrence: US)
  Receive Date: 20200622
  Receipt Date: 20200622
  Transmission Date: 20200714
  Serious: Yes (Hospitalization)
  Sender: FDA-Public Use
  Company Number: None

PATIENT
  Age: 74 Year
  Sex: Male

DRUGS (1)
  1. MELOXICAM (MELOXICAM 15MG TAB) [Suspect]
     Active Substance: MELOXICAM
     Indication: PAIN
     Route: 048
     Dates: start: 20180709, end: 20200328

REACTIONS (5)
  - Upper gastrointestinal haemorrhage [None]
  - Gastric ulcer haemorrhage [None]
  - Melaena [None]
  - Haemoglobin decreased [None]
  - Haematemesis [None]

NARRATIVE: CASE EVENT DATE: 20200328
